FAERS Safety Report 9418319 (Version 3)
Quarter: 2013Q3

REPORT INFORMATION
  Report Type: Spontaneous
  Country: DZ (occurrence: DZ)
  Receive Date: 20130725
  Receipt Date: 20130917
  Transmission Date: 20140515
  Serious: Yes (Other)
  Sender: FDA-Public Use
  Company Number: DZ-ROCHE-1252739

PATIENT
  Age: 22 Year
  Sex: Female

DRUGS (1)
  1. PEGASYS [Suspect]
     Indication: HEPATITIS B
     Route: 058
     Dates: start: 20130106, end: 201305

REACTIONS (8)
  - Depressed mood [Recovering/Resolving]
  - Social avoidant behaviour [Recovering/Resolving]
  - Delirium [Recovered/Resolved]
  - Haemoglobin decreased [Recovered/Resolved]
  - Bronchitis [Recovered/Resolved]
  - Influenza like illness [Recovered/Resolved]
  - Asthenia [Recovered/Resolved]
  - Fatigue [Recovered/Resolved]
